FAERS Safety Report 5794427-3 (Version None)
Quarter: 2008Q2

REPORT INFORMATION
  Report Type: 
  Country: None (occurrence: None)
  Receive Date: 20080630
  Receipt Date: 20080624
  Transmission Date: 20081010
  Serious: Yes (Other)
  Sender: FDA-Public Use
  Company Number: GB-RANBAXY-2008RR-16080

PATIENT

DRUGS (6)
  1. SIMVASTATIN [Suspect]
     Indication: PROPHYLAXIS
     Dosage: 20 MG, QD
     Route: 048
     Dates: start: 20070301
  2. SIMVASTATIN [Suspect]
     Dosage: 40 MG, QD
     Route: 048
     Dates: start: 20060501, end: 20070301
  3. AMLODIPINE BESYLATE [Concomitant]
     Indication: HYPERTENSION
     Dosage: 5 MG, QD
     Route: 065
     Dates: start: 20060401
  4. ASPIRIN [Concomitant]
     Indication: CARDIOVASCULAR EVENT PROPHYLAXIS
     Dosage: 75 MG, QD
     Route: 065
     Dates: start: 20060401
  5. RAMIPRIL [Concomitant]
     Indication: HYPERTENSION
     Dosage: 10 MG, QD
     Route: 065
     Dates: start: 20060401
  6. ATENOLOL [Concomitant]
     Indication: HYPERTENSION
     Dosage: 25 MG, QD
     Dates: start: 20070301

REACTIONS (3)
  - BLOOD IRON DECREASED [None]
  - HAEMOGLOBIN DECREASED [None]
  - HEPATIC FUNCTION ABNORMAL [None]
